FAERS Safety Report 8251457-X (Version None)
Quarter: 2012Q1

REPORT INFORMATION
  Report Type: 
  Country: None (occurrence: None)
  Receive Date: 20120328
  Receipt Date: 20120326
  Transmission Date: 20120608
  Serious: Yes (Other)
  Sender: FDA-Public Use
  Company Number: ADR-2011-10710

PATIENT
  Sex: Female

DRUGS (2)
  1. LIORESAL [Suspect]
     Indication: MUSCLE SPASTICITY
     Dosage: UNK MCG, DAILY, INTRATH
     Route: 037
  2. SEE IMAGE [Concomitant]

REACTIONS (7)
  - NAUSEA [None]
  - DIARRHOEA [None]
  - DRUG WITHDRAWAL SYNDROME [None]
  - DEVICE MALFUNCTION [None]
  - RHINORRHOEA [None]
  - ABDOMINAL PAIN UPPER [None]
  - PAIN [None]
